FAERS Safety Report 9723386 (Version 1)
Quarter: 2013Q4

REPORT INFORMATION
  Report Type: Spontaneous
  Country: US (occurrence: US)
  Receive Date: 20131202
  Receipt Date: 20131202
  Transmission Date: 20140711
  Serious: No
  Sender: FDA-Public Use
  Company Number: US-JNJFOC-20131112891

PATIENT
  Sex: Male

DRUGS (2)
  1. DURAGESIC [Suspect]
     Indication: PAIN
     Route: 062
     Dates: start: 2012
  2. DURAGESIC [Suspect]
     Indication: PAIN
     Route: 062
     Dates: end: 2012

REACTIONS (6)
  - Inadequate analgesia [Recovered/Resolved]
  - Drug administered at inappropriate site [Unknown]
  - Product quality issue [Unknown]
  - Hyperhidrosis [Unknown]
  - Product adhesion issue [Not Recovered/Not Resolved]
  - Drug dose omission [Recovered/Resolved]
